FAERS Safety Report 7029784-3 (Version None)
Quarter: 2010Q4

REPORT INFORMATION
  Report Type: 
  Country: None (occurrence: None)
  Receive Date: 20101001
  Receipt Date: 20100921
  Transmission Date: 20110411
  Serious: Yes (Hospitalization)
  Sender: FDA-Public Use
  Company Number: TCI2010A03971

PATIENT
  Age: 61 Year
  Sex: Male

DRUGS (3)
  1. ACTOS [Suspect]
     Indication: TYPE 2 DIABETES MELLITUS
     Dosage: 30 MG (30 MG, 1 D), PER ORAL
     Route: 048
     Dates: start: 20090423
  2. SULFONAMIDES, UREA DERIATIVES [Concomitant]
  3. BIGUANIDES [Concomitant]

REACTIONS (4)
  - ACUTE MYOCARDIAL INFARCTION [None]
  - ELECTROCARDIOGRAM ST SEGMENT ELEVATION [None]
  - PNEUMONIA [None]
  - PYREXIA [None]
